FAERS Safety Report 9402810 (Version 2)
Quarter: 2013Q3

REPORT INFORMATION
  Report Type: Spontaneous
  Country: US (occurrence: US)
  Receive Date: 20130716
  Receipt Date: 20130806
  Transmission Date: 20140515
  Serious: No
  Sender: FDA-Public Use
  Company Number: US-PFIZER INC-2013207825

PATIENT
  Age: 35 Year
  Sex: 0

DRUGS (4)
  1. ZOLOFT [Suspect]
     Dosage: UNK
  2. ROCEPHIN [Suspect]
     Dosage: UNK
  3. METHADONE [Suspect]
     Dosage: UNK
  4. DARVOCET [Suspect]
     Dosage: UNK

REACTIONS (1)
  - Drug hypersensitivity [Unknown]
